FAERS Safety Report 7265250-8 (Version None)
Quarter: 2011Q1

REPORT INFORMATION
  Report Type: 
  Country: None (occurrence: None)
  Receive Date: 20110131
  Receipt Date: 20110120
  Transmission Date: 20110831
  Serious: Yes (Hospitalization)
  Sender: FDA-Public Use
  Company Number: ES-ASTRAZENECA-2011SE03611

PATIENT
  Sex: Male

DRUGS (2)
  1. MERONEM [Suspect]
     Route: 042
     Dates: start: 20090627, end: 20090703
  2. VANCOMYCIN [Suspect]
     Route: 042
     Dates: start: 20090627, end: 20090703

REACTIONS (2)
  - DEPRESSED LEVEL OF CONSCIOUSNESS [None]
  - ENCEPHALOPATHY [None]
